FAERS Safety Report 7459853-5 (Version None)
Quarter: 2011Q2

REPORT INFORMATION
  Report Type: 
  Country: None (occurrence: None)
  Receive Date: 20110505
  Receipt Date: 20110422
  Transmission Date: 20111010
  Serious: Yes (Hospitalization)
  Sender: FDA-Public Use
  Company Number: JP-ELI_LILLY_AND_COMPANY-JP_041105007

PATIENT
  Age: 14 Year
  Sex: Female
  Weight: 85 kg

DRUGS (1)
  1. ZYPREXA [Suspect]
     Indication: SCHIZOPHRENIA
     Dosage: 20 MG, DAILY (1/D)
     Route: 048
     Dates: start: 20040201, end: 20040604

REACTIONS (10)
  - HYPOMENORRHOEA [None]
  - ACANTHOSIS NIGRICANS [None]
  - WEIGHT INCREASED [None]
  - HEPATIC STEATOSIS [None]
  - HYPERPHAGIA [None]
  - GENITAL HAEMORRHAGE [None]
  - LOSS OF CONSCIOUSNESS [None]
  - HYPERLIPIDAEMIA [None]
  - DIABETES MELLITUS [None]
  - CUSHING'S SYNDROME [None]
